FAERS Safety Report 23799564 (Version 1)
Quarter: 2024Q2

REPORT INFORMATION
  Report Type: Spontaneous
  Country: US (occurrence: None)
  Receive Date: 20240428
  Receipt Date: 20240428
  Transmission Date: 20240716
  Serious: Yes (Life-Threatening)
  Sender: FDA-Public Use
  Company Number: None

PATIENT
  Age: 5 Year
  Sex: Male
  Weight: 18.1 kg

DRUGS (1)
  1. ANAVIP [Suspect]
     Active Substance: PIT VIPER (CROTALINAE) IMMUNE GLOBULIN ANTIVENIN (EQUINE)
     Indication: Snake bite
     Dosage: 10 TOT - TOTAL ONCE INTRAVENOUS DRIP?
     Route: 041
     Dates: start: 20240419, end: 20240419

REACTIONS (4)
  - Vomiting [None]
  - Gait disturbance [None]
  - Anaphylactic reaction [None]
  - Therapy cessation [None]

NARRATIVE: CASE EVENT DATE: 20240419
